FAERS Safety Report 5290907-8 (Version None)
Quarter: 2007Q2

REPORT INFORMATION
  Report Type: 
  Country: None (occurrence: None)
  Receive Date: 20070409
  Receipt Date: 20070327
  Transmission Date: 20071010
  Serious: Yes (Death, Hospitalization, Other)
  Sender: FDA-Public Use
  Company Number: US-PFIZER INC-2007009350

PATIENT
  Sex: Male

DRUGS (3)
  1. LYRICA [Suspect]
     Indication: LUMBAR RADICULOPATHY
  2. LYRICA [Suspect]
     Indication: NEUROPATHY
  3. PERCOCET [Concomitant]

REACTIONS (3)
  - DEEP VEIN THROMBOSIS [None]
  - DYSPNOEA [None]
  - PULMONARY EMBOLISM [None]
